FAERS Safety Report 6248681-4 (Version None)
Quarter: 2009Q2

REPORT INFORMATION
  Report Type: 
  Country: None (occurrence: None)
  Receive Date: 20090629
  Receipt Date: 20090623
  Transmission Date: 20091009
  Serious: Yes (Hospitalization)
  Sender: FDA-Public Use
  Company Number: DE-ASTRAZENECA-2009PK01554

PATIENT
  Age: 51 Year
  Sex: Female

DRUGS (18)
  1. SEROQUEL [Suspect]
     Route: 048
     Dates: start: 20080101, end: 20090106
  2. SEROQUEL [Suspect]
     Route: 048
     Dates: start: 20090107, end: 20090113
  3. SEROQUEL [Suspect]
     Route: 048
     Dates: start: 20090114, end: 20090114
  4. SEROQUEL [Suspect]
     Route: 048
     Dates: start: 20090115, end: 20090203
  5. SEROQUEL [Suspect]
     Route: 048
     Dates: start: 20090204, end: 20090209
  6. SEROQUEL [Suspect]
     Route: 048
     Dates: start: 20090210, end: 20090212
  7. SEROQUEL [Suspect]
     Route: 048
     Dates: start: 20090213
  8. TAVOR [Suspect]
     Route: 048
     Dates: start: 20081231
  9. AURORIX [Suspect]
     Route: 048
     Dates: start: 20090122, end: 20090123
  10. AURORIX [Suspect]
     Route: 048
     Dates: start: 20090124, end: 20090127
  11. AURORIX [Suspect]
     Route: 048
     Dates: start: 20090128, end: 20090201
  12. AURORIX [Suspect]
     Route: 048
     Dates: start: 20080202, end: 20090202
  13. QUILONIUM RETARD [Suspect]
     Route: 048
     Dates: start: 20080101, end: 20090105
  14. QUILONIUM RETARD [Suspect]
     Route: 048
     Dates: start: 20090107, end: 20090201
  15. QUILONIUM RETARD [Suspect]
     Route: 048
     Dates: start: 20090202, end: 20090208
  16. QUILONIUM RETARD [Suspect]
     Route: 048
     Dates: start: 20090209, end: 20090216
  17. BISOPROLOL FUMARATE [Concomitant]
     Route: 048
     Dates: start: 20080101
  18. PANTOZOL [Concomitant]
     Route: 048
     Dates: start: 20080101

REACTIONS (1)
  - ALTERED STATE OF CONSCIOUSNESS [None]
